FAERS Safety Report 8027924-0 (Version None)
Quarter: 2012Q1

REPORT INFORMATION
  Report Type: 
  Country: None (occurrence: None)
  Receive Date: 20120106
  Receipt Date: 20111227
  Transmission Date: 20120608
  Serious: Yes (Death)
  Sender: FDA-Public Use
  Company Number: US-JNJFOC-20111212557

PATIENT
  Age: 25 Year
  Sex: Female

DRUGS (1)
  1. DEXTROMETHORPHAN [Suspect]
     Indication: SUICIDE ATTEMPT
     Route: 048

REACTIONS (1)
  - TOXICITY TO VARIOUS AGENTS [None]
